FAERS Safety Report 14954976 (Version 1)
Quarter: 2018Q2

REPORT INFORMATION
  Report Type: Spontaneous
  Country: DE (occurrence: DE)
  Receive Date: 20180531
  Receipt Date: 20180531
  Transmission Date: 20180711
  Serious: Yes (Life-Threatening, Hospitalization)
  Sender: FDA-Public Use
  Company Number: DE-ROCHE-2132323

PATIENT
  Sex: Female

DRUGS (9)
  1. LUCENTIS [Suspect]
     Active Substance: RANIBIZUMAB
     Dosage: 1X RIGHT EYE
     Route: 031
     Dates: start: 20160811
  2. LUCENTIS [Suspect]
     Active Substance: RANIBIZUMAB
     Indication: NEOVASCULAR AGE-RELATED MACULAR DEGENERATION
     Dosage: 1X RIGHT EYE
     Route: 031
     Dates: start: 20160707
  3. LUCENTIS [Suspect]
     Active Substance: RANIBIZUMAB
     Dosage: 1X LEFT EYE
     Route: 031
     Dates: start: 20161013
  4. LUCENTIS [Suspect]
     Active Substance: RANIBIZUMAB
     Dosage: 1X RIGHT EYE
     Route: 031
     Dates: start: 20161117
  5. LUCENTIS [Suspect]
     Active Substance: RANIBIZUMAB
     Dosage: 1X LEFT EYE
     Route: 031
     Dates: start: 20161201
  6. LUCENTIS [Suspect]
     Active Substance: RANIBIZUMAB
     Dosage: 1X LEFT EYE
     Route: 031
     Dates: start: 20160728
  7. LUCENTIS [Suspect]
     Active Substance: RANIBIZUMAB
     Dosage: 1X LEFT EYE
     Route: 031
     Dates: start: 20160825
  8. LUCENTIS [Suspect]
     Active Substance: RANIBIZUMAB
     Dosage: 1X RIGHT EYE
     Route: 031
     Dates: start: 20160908
  9. LUCENTIS [Suspect]
     Active Substance: RANIBIZUMAB
     Dosage: 1X RIGHT EYE
     Route: 031
     Dates: start: 20161215, end: 20161215

REACTIONS (1)
  - Hypertension [Not Recovered/Not Resolved]

NARRATIVE: CASE EVENT DATE: 20170415
